FAERS Safety Report 16197085 (Version 1)
Quarter: 2019Q2

REPORT INFORMATION
  Report Type: Spontaneous
  Country: US (occurrence: US)
  Receive Date: 20190412
  Receipt Date: 20190412
  Transmission Date: 20190711
  Serious: Yes (Hospitalization)
  Sender: FDA-Public Use
  Company Number: None

PATIENT
  Age: 67 Year
  Sex: Female
  Weight: 50.1 kg

DRUGS (9)
  1. RITUXAN HYCELA [Suspect]
     Active Substance: HYALURONIDASE (HUMAN RECOMBINANT)\RITUXIMAB
     Indication: CHRONIC LYMPHOCYTIC LEUKAEMIA
     Dosage: ?          OTHER FREQUENCY:TWICE WEEKLY;?
     Route: 058
     Dates: start: 20190409, end: 20190411
  2. CHOLECALCIFEROL [Concomitant]
     Active Substance: CHOLECALCIFEROL
  3. CALCIUM-VITAMIN D [Concomitant]
     Active Substance: CALCIUM\VITAMIN D
  4. LEVOTHYROXINE. [Concomitant]
     Active Substance: LEVOTHYROXINE
     Dates: start: 20181019
  5. CLONAZEPAM. [Concomitant]
     Active Substance: CLONAZEPAM
     Dates: start: 20090219
  6. ESTRADIOL. [Concomitant]
     Active Substance: ESTRADIOL
     Dates: start: 20181108
  7. QUETIAPINE. [Concomitant]
     Active Substance: QUETIAPINE
     Dates: start: 20180824
  8. MELATONIN [Concomitant]
     Active Substance: MELATONIN
  9. GUAIFENESIN-CODEINE [Concomitant]

REACTIONS (4)
  - Pneumonia [None]
  - Tachypnoea [None]
  - Tachycardia [None]
  - Anaemia [None]

NARRATIVE: CASE EVENT DATE: 20190411
